FAERS Safety Report 21403169 (Version 1)
Quarter: 2022Q3

REPORT INFORMATION
  Report Type: Spontaneous
  Country: US (occurrence: None)
  Receive Date: 20220928
  Receipt Date: 20220928
  Transmission Date: 20221027
  Serious: Yes (Hospitalization)
  Sender: FDA-Public Use
  Company Number: None

PATIENT
  Age: 40 Year
  Sex: Male
  Weight: 150 kg

DRUGS (2)
  1. QUETIAPINE FUMARATE [Suspect]
     Active Substance: QUETIAPINE FUMARATE
     Indication: Depression
     Dosage: FREQUENCY : AT BEDTIME;?
     Route: 048
     Dates: start: 20220327
  2. LORAZEPAM [Suspect]
     Active Substance: LORAZEPAM
     Dosage: FREQUENCY : WEEKLY;?
     Route: 048
     Dates: start: 20220207

REACTIONS (4)
  - Agitation [None]
  - Confusional state [None]
  - Depression [None]
  - Intentional overdose [None]

NARRATIVE: CASE EVENT DATE: 20220811
